FAERS Safety Report 9104283 (Version 5)
Quarter: 2013Q2

REPORT INFORMATION
  Report Type: Report from Study
  Country: HU (occurrence: HU)
  Receive Date: 20130219
  Receipt Date: 20130416
  Transmission Date: 20140414
  Serious: Yes (Hospitalization, Other)
  Sender: FDA-Public Use
  Company Number: HU-ROCHE-1192348

PATIENT
  Age: 65 Year
  Sex: Male

DRUGS (2)
  1. XELODA [Suspect]
     Indication: GASTRIC CANCER
     Route: 048
     Dates: start: 20130206, end: 20130412
  2. CISPLATIN [Concomitant]
     Indication: GASTRIC CANCER

REACTIONS (4)
  - Headache [Unknown]
  - Loss of consciousness [Unknown]
  - Arterial occlusive disease [Recovering/Resolving]
  - Anaemia [Not Recovered/Not Resolved]
